FAERS Safety Report 25804278 (Version 2)
Quarter: 2025Q4

REPORT INFORMATION
  Report Type: Report from Study
  Country: US (occurrence: US)
  Receive Date: 20250915
  Receipt Date: 20251015
  Transmission Date: 20260117
  Serious: No
  Sender: MALLINCKRODT
  Company Number: US-MALLINCKRODT-MNK202505181

PATIENT
  Age: 47 Year
  Sex: Female

DRUGS (1)
  1. CORTICOTROPIN [Suspect]
     Active Substance: CORTICOTROPIN
     Indication: Sarcoidosis of lymph node
     Dosage: UNKNOWN

REACTIONS (12)
  - Pain [Unknown]
  - Hepatic pain [Unknown]
  - Pain in extremity [Unknown]
  - Renal pain [Unknown]
  - Joint effusion [Unknown]
  - Faeces discoloured [Unknown]
  - Back pain [Unknown]
  - Peripheral swelling [Unknown]
  - Diarrhoea [Unknown]
  - Injection site mass [Unknown]
  - Product dose omission in error [Unknown]
  - Wrong technique in device usage process [Unknown]

NARRATIVE: CASE EVENT DATE: 20250901
